FAERS Safety Report 18050442 (Version 1)
Quarter: 2020Q3

REPORT INFORMATION
  Report Type: Spontaneous
  Country: DE (occurrence: DE)
  Receive Date: 20200721
  Receipt Date: 20200721
  Transmission Date: 20201103
  Serious: Yes (Hospitalization)
  Sender: FDA-Public Use
  Company Number: DE-TEVA-2020-DE-1802600

PATIENT
  Age: 7 Year
  Sex: Male
  Weight: 29 kg

DRUGS (7)
  1. URSOFALK [Concomitant]
     Active Substance: URSODIOL
     Indication: CONGENITAL ABSENCE OF BILE DUCTS
     Dosage: 10 ML, DAILY DOSE: 10 ML MILLILITRE(S) EVERY DAYS 2 SEPARATED DOSES
     Route: 048
  2. SANDIMMUN [Suspect]
     Active Substance: CYCLOSPORINE
     Indication: IMMUNOSUPPRESSANT DRUG THERAPY
     Dosage: 0.76 ML ,DAILY DOSE: 0.76 ML MILLILITRE(S) EVERY DAYS 2 SEPARATED DOSES
     Route: 048
  3. VIGANTOL [Concomitant]
     Indication: VITAMIN D DEFICIENCY
     Dosage: 500 IU, DAILY DOSE: 500 IU INTERNATIONAL UNIT(S) EVERY DAYS
     Route: 048
  4. CELLCEPT [Suspect]
     Active Substance: MYCOPHENOLATE MOFETIL\MYCOPHENOLATE MOFETIL HYDROCHLORIDE
     Indication: IMMUNOSUPPRESSANT DRUG THERAPY
     Dosage: 6 ML ,DAILY DOSE: 6 ML MILLILITRE(S) EVERY DAYS 2 SEPARATED DOSES
     Route: 048
  5. AMLODIPIN [Concomitant]
     Active Substance: AMLODIPINE BESYLATE
     Indication: HYPERTENSION
     Dosage: 1 DOSAGE FORMS ,DAILY DOSE: 1 DF DOSAGE FORM EVERY DAYS 2 SEPARATED DOSES
     Route: 048
  6. PREDNISOLON [Suspect]
     Active Substance: PREDNISOLONE
     Indication: IMMUNOSUPPRESSANT DRUG THERAPY
     Dosage: 2 DOSAGE FORMS ,DAILY DOSE: 2 DF DOSAGE FORM EVERY DAYS 2 SEPARATED DOSES
     Route: 048
  7. ENALAPRIL [Concomitant]
     Active Substance: ENALAPRIL
     Indication: HYPERTENSION
     Dosage: 1 ML, DAILY DOSE: 1 ML MILLILITRE(S) EVERY DAYS
     Route: 048

REACTIONS (1)
  - Influenza [Unknown]

NARRATIVE: CASE EVENT DATE: 20200309
